FAERS Safety Report 9159910 (Version 1)
Quarter: 2013Q1

REPORT INFORMATION
  Report Type: Spontaneous
  Country: US (occurrence: US)
  Receive Date: 20130313
  Receipt Date: 20130313
  Transmission Date: 20140127
  Serious: Yes (Death)
  Sender: FDA-Public Use
  Company Number: PHEH2013US005747

PATIENT
  Age: 20 Year
  Sex: Male

DRUGS (6)
  1. TOBI [Suspect]
     Dosage: 300 MG/ 5ML TWICE DAILY, 28 DAYS ON AND 28 DAYS OFF
  2. COLISTIMETHATE [Concomitant]
     Dosage: 150 MG, UNK
  3. PULMICORT [Concomitant]
     Dosage: 200 UG, UNK
  4. PULMOZYME [Concomitant]
     Dosage: 1 MG/ML, UNK
  5. ALBUTEROL [Concomitant]
     Dosage: 90 UG, UNK
  6. ENZYME [Concomitant]
     Dosage: UNK UKN, UNK

REACTIONS (1)
  - Death [Fatal]
